FAERS Safety Report 6153748-5 (Version None)
Quarter: 2009Q2

REPORT INFORMATION
  Report Type: 
  Country: None (occurrence: None)
  Receive Date: 20090410
  Receipt Date: 20090331
  Transmission Date: 20091009
  Serious: Yes (Hospitalization)
  Sender: FDA-Public Use
  Company Number: CLOF-1000493

PATIENT
  Sex: Male

DRUGS (2)
  1. CLOLAR [Suspect]
     Indication: LEUKAEMIA
  2. CYCLOPHOSPHAMIDE [Suspect]
     Indication: LEUKAEMIA

REACTIONS (5)
  - FATIGUE [None]
  - FLUID OVERLOAD [None]
  - PERICARDIAL EFFUSION [None]
  - PLEURAL EFFUSION [None]
  - PYREXIA [None]
